FAERS Safety Report 10375027 (Version 1)
Quarter: 2014Q3

REPORT INFORMATION
  Report Type: Spontaneous
  Country: US (occurrence: None)
  Receive Date: 20140808
  Receipt Date: 20140808
  Transmission Date: 20150326
  Serious: Yes (Disabling)
  Sender: FDA-Public Use
  Company Number: None

PATIENT
  Age: 63 Year
  Sex: Female
  Weight: 56.7 kg

DRUGS (1)
  1. AVELOX [Suspect]
     Active Substance: MOXIFLOXACIN HYDROCHLORIDE
     Indication: PNEUMONIA
     Dates: start: 20081230, end: 20090104

REACTIONS (9)
  - Pain in extremity [None]
  - Muscular weakness [None]
  - Wrist fracture [None]
  - Facial bones fracture [None]
  - Musculoskeletal stiffness [None]
  - Gait disturbance [None]
  - Abasia [None]
  - Fall [None]
  - Jaw fracture [None]

NARRATIVE: CASE EVENT DATE: 20100104
